FAERS Safety Report 7771570-0 (Version None)
Quarter: 2011Q3

REPORT INFORMATION
  Report Type: 
  Country: None (occurrence: None)
  Receive Date: 20110922
  Receipt Date: 20110321
  Transmission Date: 20111222
  Serious: No
  Sender: FDA-Public Use
  Company Number: US-ASTRAZENECA-2011SE15927

PATIENT
  Age: 49 Year
  Sex: Female

DRUGS (5)
  1. SERTRALINE HYDROCHLORIDE [Concomitant]
  2. SEROQUEL XR [Suspect]
     Indication: DEPRESSION
     Route: 048
     Dates: start: 20110221, end: 20110319
  3. BYSTOLIC [Concomitant]
     Indication: HYPERTENSION
  4. SEROQUEL XR [Suspect]
     Indication: POST-TRAUMATIC STRESS DISORDER
     Route: 048
     Dates: start: 20110221, end: 20110319
  5. LORAZEPAM [Concomitant]

REACTIONS (4)
  - HEADACHE [None]
  - INSOMNIA [None]
  - CRYING [None]
  - DRUG DOSE OMISSION [None]
